FAERS Safety Report 8486756-X (Version None)
Quarter: 2012Q3

REPORT INFORMATION
  Report Type: 
  Country: None (occurrence: None)
  Receive Date: 20120704
  Receipt Date: 20120625
  Transmission Date: 20120928
  Serious: Yes (Hospitalization, Other)
  Sender: FDA-Public Use
  Company Number: AR-BIOGENIDEC-2011BI027764

PATIENT
  Sex: Female

DRUGS (8)
  1. ALPRAZOLAM (ALPLAX) [Concomitant]
  2. DICLOFENAC SODIUM [Concomitant]
     Indication: HEADACHE
  3. LAMOTRGINE [Concomitant]
     Indication: CONVULSION
     Route: 048
     Dates: start: 20120604
  4. ZOLPIDEM (SOMIT) [Concomitant]
  5. CORTICOSTEROIDS [Concomitant]
  6. AVONEX [Suspect]
     Indication: MULTIPLE SCLEROSIS
     Route: 030
     Dates: start: 20050101, end: 20120101
  7. AVONEX [Suspect]
     Route: 030
     Dates: start: 20120501
  8. EPAMIN (PHENYTOIN) [Concomitant]
     Indication: CONVULSION
     Route: 048

REACTIONS (5)
  - URINARY TRACT INFECTION [None]
  - MENINGIOMA [None]
  - MIGRAINE [None]
  - DEPRESSION [None]
  - CONVULSION [None]
